FAERS Safety Report 10273173 (Version 1)
Quarter: 2014Q2

REPORT INFORMATION
  Report Type: Spontaneous
  Country: US (occurrence: None)
  Receive Date: 20140630
  Receipt Date: 20140630
  Transmission Date: 20141212
  Serious: Yes (Disabling)
  Sender: FDA-Public Use
  Company Number: None

PATIENT
  Age: 85 Year
  Sex: Female
  Weight: 48.99 kg

DRUGS (9)
  1. AMIKACIN [Suspect]
     Indication: MYCOBACTERIUM ABSCESSUS INFECTION
     Dosage: 500MG EVERY 24HRS
     Route: 042
     Dates: start: 20131004, end: 20131204
  2. IMIPENEM [Suspect]
     Indication: MYCOBACTERIUM ABSCESSUS INFECTION
     Dosage: INFUSION.
     Route: 042
     Dates: start: 20131004, end: 20131204
  3. CIPROFLOXACIN [Suspect]
     Indication: MYCOBACTERIUM ABSCESSUS INFECTION
     Dates: start: 20131004, end: 20131204
  4. SYNTHROID [Concomitant]
  5. CALCIUM [Concomitant]
  6. VITAMIN D [Concomitant]
  7. VITAMIN B12 [Concomitant]
  8. D3 [Concomitant]
  9. BIOTIN [Concomitant]

REACTIONS (10)
  - Rash [None]
  - Pruritus [None]
  - Burning sensation [None]
  - Sleep disorder [None]
  - Pulmonary pain [None]
  - Ear pain [None]
  - Tinnitus [None]
  - Pollakiuria [None]
  - Balance disorder [None]
  - Gait disturbance [None]
